FAERS Safety Report 25718470 (Version 4)
Quarter: 2025Q3

REPORT INFORMATION
  Report Type: Spontaneous
  Country: US (occurrence: US)
  Receive Date: 20250823
  Receipt Date: 20250909
  Transmission Date: 20251021
  Serious: No
  Sender: ABBVIE
  Company Number: US-ABBVIE-6427145

PATIENT
  Sex: Female

DRUGS (3)
  1. SAPHRIS [Suspect]
     Active Substance: ASENAPINE MALEATE
     Indication: Adjustment disorder with depressed mood
     Route: 048
     Dates: start: 2013
  2. SAPHRIS [Suspect]
     Active Substance: ASENAPINE MALEATE
     Indication: Adjustment disorder with depressed mood
     Route: 048
  3. SAPHRIS [Suspect]
     Active Substance: ASENAPINE MALEATE
     Indication: Adjustment disorder with depressed mood
     Route: 048

REACTIONS (1)
  - Therapeutic product effect decreased [Unknown]
